FAERS Safety Report 24955562 (Version 1)
Quarter: 2025Q1

REPORT INFORMATION
  Report Type: Spontaneous
  Country: US (occurrence: US)
  Receive Date: 20250211
  Receipt Date: 20250211
  Transmission Date: 20250408
  Serious: No
  Sender: SANOFI AVENTIS
  Company Number: US-SA-2025SA039631

PATIENT
  Age: 28 Year
  Sex: Male

DRUGS (1)
  1. DUPIXENT [Suspect]
     Active Substance: DUPILUMAB
     Dosage: 300 MG, QW
     Route: 058
     Dates: start: 202501

REACTIONS (6)
  - Dyspnoea [Unknown]
  - Paraesthesia [Unknown]
  - Oesophageal discomfort [Unknown]
  - Cyanosis [Unknown]
  - Tremor [Unknown]
  - Chest pain [Unknown]

NARRATIVE: CASE EVENT DATE: 20250203
